FAERS Safety Report 18928958 (Version 1)
Quarter: 2021Q1

REPORT INFORMATION
  Report Type: Report from Study
  Country: None (occurrence: CA)
  Receive Date: 20210223
  Receipt Date: 20210223
  Transmission Date: 20210420
  Serious: Yes (Other)
  Sender: FDA-Public Use
  Company Number: CA-ABBVIE-21K-028-3781378-00

PATIENT
  Age: 60 Year
  Sex: Male
  Weight: 52.21 kg

DRUGS (1)
  1. MAVIRET [Suspect]
     Active Substance: GLECAPREVIR\PIBRENTASVIR
     Indication: CHRONIC HEPATITIS C
     Route: 048
     Dates: start: 20200501, end: 20200801

REACTIONS (9)
  - Weight decreased [Unknown]
  - Blood glucose abnormal [Unknown]
  - Grip strength decreased [Unknown]
  - Dyspnoea [Unknown]
  - Dysphonia [Unknown]
  - Lung neoplasm malignant [Unknown]
  - Emphysema [Unknown]
  - Mass [Unknown]
  - Memory impairment [Unknown]

NARRATIVE: CASE EVENT DATE: 202101
